FAERS Safety Report 11895784 (Version 2)
Quarter: 2016Q1

REPORT INFORMATION
  Report Type: Spontaneous
  Country: US (occurrence: US)
  Receive Date: 20160107
  Receipt Date: 20160110
  Transmission Date: 20160526
  Serious: No
  Sender: FDA-Public Use
  Company Number: ALCN2015US008146

PATIENT
  Age: 36 Year
  Sex: Female

DRUGS (1)
  1. MOXEZA [Suspect]
     Active Substance: MOXIFLOXACIN HYDROCHLORIDE
     Indication: PRODUCT USED FOR UNKNOWN INDICATION
     Dosage: UNK
     Route: 047
     Dates: start: 20151228, end: 20151228

REACTIONS (5)
  - Dry skin [Recovered/Resolved]
  - Blepharitis [Recovered/Resolved]
  - Eyelids pruritus [Recovered/Resolved]
  - Eyelid irritation [Recovered/Resolved]
  - Eyelid rash [Recovered/Resolved]

NARRATIVE: CASE EVENT DATE: 20151228
